FAERS Safety Report 7331327-1 (Version None)
Quarter: 2011Q1

REPORT INFORMATION
  Report Type: 
  Country: None (occurrence: None)
  Receive Date: 20110228
  Receipt Date: 20110228
  Transmission Date: 20110831
  Serious: Yes (Hospitalization)
  Sender: FDA-Public Use
  Company Number: None

PATIENT
  Age: 39 Year
  Sex: Male
  Weight: 104.1 kg

DRUGS (1)
  1. PHYTONADIONE [Suspect]
     Indication: INTERNATIONAL NORMALISED RATIO INCREASED
     Dosage: 5MG VIT K IN 50ML D5W ONCE IV PIGGYBACK
     Route: 042
     Dates: start: 20100728

REACTIONS (9)
  - CHEST DISCOMFORT [None]
  - HYPOAESTHESIA [None]
  - ERYTHEMA [None]
  - CRYING [None]
  - DYSPNOEA [None]
  - TACHYPNOEA [None]
  - PAIN [None]
  - TACHYCARDIA [None]
  - CHEST PAIN [None]
